FAERS Safety Report 8629427 (Version 3)
Quarter: 2014Q1

REPORT INFORMATION
  Report Type: Spontaneous
  Country: US (occurrence: US)
  Receive Date: 20120622
  Receipt Date: 20140114
  Transmission Date: 20141002
  Serious: Yes (Disabling, Other)
  Sender: FDA-Public Use
  Company Number: US-ASTRAZENECA-2012SE35623

PATIENT
  Age: 62 Year
  Sex: Female
  Weight: 87.1 kg

DRUGS (25)
  1. NEXIUM [Suspect]
     Indication: DYSPEPSIA
     Dosage: ONCE
     Route: 048
     Dates: start: 1990, end: 2009
  2. NEXIUM [Suspect]
     Indication: GASTROOESOPHAGEAL REFLUX DISEASE
     Dosage: ONCE
     Route: 048
     Dates: start: 1990, end: 2009
  3. NEXIUM [Suspect]
     Indication: DYSPEPSIA
     Route: 048
     Dates: start: 2000, end: 2010
  4. NEXIUM [Suspect]
     Indication: GASTROOESOPHAGEAL REFLUX DISEASE
     Route: 048
     Dates: start: 2000, end: 2010
  5. NEXIUM [Suspect]
     Indication: DYSPEPSIA
     Route: 048
     Dates: start: 20070430
  6. NEXIUM [Suspect]
     Indication: GASTROOESOPHAGEAL REFLUX DISEASE
     Route: 048
     Dates: start: 20070430
  7. PRILOSEC OTC [Suspect]
     Indication: GASTROOESOPHAGEAL REFLUX DISEASE
     Route: 048
     Dates: start: 200604, end: 201109
  8. PRILOSEC OTC [Suspect]
     Indication: GASTROOESOPHAGEAL REFLUX DISEASE
     Route: 048
     Dates: start: 20100406
  9. TAGAMET [Concomitant]
     Dates: start: 1983
  10. TAGAMET [Concomitant]
     Dosage: AFTER EVERY MEAL
     Dates: start: 201109, end: 2013
  11. QUINAPRIL [Concomitant]
     Indication: HYPERTENSION
  12. LIPITOR [Concomitant]
     Indication: BLOOD CHOLESTEROL INCREASED
  13. INSULIN [Concomitant]
     Indication: DIABETES MELLITUS
  14. CELEBREX [Concomitant]
     Indication: ARTHRITIS
  15. MOBIC [Concomitant]
     Indication: ARTHRITIS
  16. GABAPENTIN [Concomitant]
     Indication: SYSTEMIC LUPUS ERYTHEMATOSUS
  17. GABAPENTIN [Concomitant]
     Indication: FIBROMYALGIA
  18. FORTEO [Concomitant]
     Indication: OSTEOPOROSIS
  19. PROTONIX [Concomitant]
     Indication: GASTROOESOPHAGEAL REFLUX DISEASE
  20. PREVACID [Concomitant]
     Indication: GASTROOESOPHAGEAL REFLUX DISEASE
  21. CYCLOBENZAPRINE [Concomitant]
     Indication: MUSCLE SPASMS
  22. VITAMIN C [Concomitant]
  23. VITAMIN D [Concomitant]
  24. CALCIUM [Concomitant]
  25. ASPIRIN [Concomitant]
     Indication: CARDIOVASCULAR DISORDER

REACTIONS (15)
  - Hand fracture [Unknown]
  - Fall [Unknown]
  - Fibromyalgia [Unknown]
  - Multiple fractures [Unknown]
  - Osteoporosis [Unknown]
  - Wrist fracture [Unknown]
  - Systemic lupus erythematosus [Unknown]
  - Foot fracture [Unknown]
  - Hypoglycaemia [Unknown]
  - Upper limb fracture [Unknown]
  - Arthritis [Unknown]
  - Scoliosis [Unknown]
  - Ligament sprain [Unknown]
  - Stress fracture [Unknown]
  - Osteopenia [Unknown]
